FAERS Safety Report 8773738 (Version 2)
Quarter: 2012Q4

REPORT INFORMATION
  Report Type: Report from Study
  Country: DE (occurrence: DE)
  Receive Date: 20120907
  Receipt Date: 20121019
  Transmission Date: 20130627
  Serious: Yes (Death, Hospitalization)
  Sender: FDA-Public Use
  Company Number: DE-ROCHE-1116904

PATIENT
  Age: 72 Year
  Sex: Female
  Weight: 67 kg

DRUGS (2)
  1. RITUXIMAB [Suspect]
     Indication: MALIGNANT LYMPHOID NEOPLASM
     Dosage: 630 mg absolute, Most recent dose prior to SAE 25/Jun/2012
     Route: 042
     Dates: start: 20100315, end: 20120625
  2. BENDAMUSTINE [Suspect]
     Indication: MALIGNANT LYMPHOID NEOPLASM
     Dosage: 148 mg absolute, Most recent dose prior to SAE 05/Aug/2010
     Route: 042
     Dates: start: 20100316

REACTIONS (1)
  - Subarachnoid haemorrhage [Fatal]
